FAERS Safety Report 5381425-7 (Version None)
Quarter: 2007Q3

REPORT INFORMATION
  Report Type: 
  Country: None (occurrence: None)
  Receive Date: 20070709
  Receipt Date: 20070626
  Transmission Date: 20080115
  Serious: Yes (Other)
  Sender: FDA-Public Use
  Company Number: DE-NOVOPROD-264950

PATIENT
  Sex: Female
  Weight: 38.7 kg

DRUGS (1)
  1. NORDITROPIN [Suspect]
     Dosage: 1 MG, QD
     Route: 058
     Dates: start: 20050401, end: 20070106

REACTIONS (1)
  - CONVULSION [None]
